FAERS Safety Report 5510706-9 (Version None)
Quarter: 2007Q4

REPORT INFORMATION
  Report Type: 
  Country: None (occurrence: None)
  Receive Date: 20071108
  Receipt Date: 20071102
  Transmission Date: 20080405
  Serious: Yes (Other)
  Sender: FDA-Public Use
  Company Number: A0689592A

PATIENT
  Age: 67 Year
  Sex: Male
  Weight: 68.2 kg

DRUGS (1)
  1. REQUIP [Suspect]
     Indication: RESTLESS LEGS SYNDROME
     Route: 048
     Dates: start: 20070730, end: 20070731

REACTIONS (4)
  - IMMOBILE [None]
  - MONOPLEGIA [None]
  - PARAESTHESIA [None]
  - SENSORY LOSS [None]
